FAERS Safety Report 13248562 (Version 1)
Quarter: 2017Q1

REPORT INFORMATION
  Report Type: Spontaneous
  Country: US (occurrence: US)
  Receive Date: 20170218
  Receipt Date: 20170218
  Transmission Date: 20170428
  Serious: No
  Sender: FDA-Public Use
  Company Number: US-ALLERGAN-1659339US

PATIENT
  Age: 80 Year
  Sex: Female

DRUGS (3)
  1. PREDNISOLONE ACETATE. [Concomitant]
     Active Substance: PREDNISOLONE ACETATE
     Indication: CATARACT OPERATION
     Dosage: 2 GTT, QID
     Dates: start: 201605
  2. RESTASIS [Suspect]
     Active Substance: CYCLOSPORINE
     Indication: DRY EYE
     Dosage: 2 GTT, BID
     Route: 047
     Dates: end: 20160606
  3. BIGMOX [Concomitant]
     Indication: CATARACT OPERATION
     Dosage: UNK
     Route: 047
     Dates: start: 201605

REACTIONS (6)
  - Discomfort [Not Recovered/Not Resolved]
  - Eye irritation [Not Recovered/Not Resolved]
  - Lacrimation increased [Not Recovered/Not Resolved]
  - Swelling face [Not Recovered/Not Resolved]
  - Ocular hyperaemia [Not Recovered/Not Resolved]
  - Malaise [Not Recovered/Not Resolved]
